FAERS Safety Report 9285077 (Version 1)
Quarter: 2013Q2

REPORT INFORMATION
  Report Type: Spontaneous
  Country: IT (occurrence: IT)
  Receive Date: 20130513
  Receipt Date: 20130513
  Transmission Date: 20140414
  Serious: Yes (Other)
  Sender: FDA-Public Use
  Company Number: IT-JNJFOC-20130501620

PATIENT
  Age: 33 Year
  Sex: Male

DRUGS (3)
  1. RISPERDAL [Suspect]
     Indication: PRODUCT USED FOR UNKNOWN INDICATION
     Dosage: 4 X 2 MG TABLETS
     Route: 048
     Dates: start: 20130501, end: 20130501
  2. LORAZEPAM [Suspect]
     Indication: PRODUCT USED FOR UNKNOWN INDICATION
     Route: 065
     Dates: start: 20130501, end: 20130501
  3. ALCOHOL [Suspect]
     Indication: SELF INJURIOUS BEHAVIOUR
     Route: 065
     Dates: start: 20130501, end: 20130501

REACTIONS (2)
  - Self injurious behaviour [Unknown]
  - Sopor [Unknown]
